FAERS Safety Report 9170493 (Version 1)
Quarter: 2013Q1

REPORT INFORMATION
  Report Type: Spontaneous
  Country: US (occurrence: None)
  Receive Date: 20130307
  Receipt Date: 20130307
  Transmission Date: 20140127
  Serious: Yes (Other)
  Sender: FDA-Public Use
  Company Number: 2013-0937

PATIENT
  Age: 49 Year
  Sex: Male

DRUGS (11)
  1. SOMATULINE DEPOT [Suspect]
     Indication: ACROMEGALY
     Dosage: 90 MG, 1 IN 28 D
     Route: 058
     Dates: start: 20121012
  2. HYDROCORTISONE [Concomitant]
  3. ALBUTEROL (SALBUTAMOL) [Concomitant]
  4. FLOVENT (FLUTICASONE PROPIONATE) [Concomitant]
  5. CRANBERRY PILLS (VACCINIUM MACROCARPON) [Concomitant]
  6. GLUCOSAMINE (GLUCOSAMINE) [Concomitant]
  7. FIBER (ALL OTHER THERAPEUTIC PRODUCTS) [Concomitant]
  8. VITAMIN C [Concomitant]
  9. FUHASL (ALL OTHER THERAPEUTIC PRODUCTS) [Concomitant]
  10. AXIRON (TESTOSTERONE PROPIONATE) [Concomitant]
  11. NEXIUM (ESOMEPRAZOLE MAGNESIUM) [Concomitant]

REACTIONS (11)
  - Basal cell carcinoma [None]
  - Prostatitis [None]
  - Abdominal distension [None]
  - Flatulence [None]
  - Nausea [None]
  - Pelvic pain [None]
  - Fatigue [None]
  - Rash macular [None]
  - Skin discolouration [None]
  - Blood glucose increased [None]
  - Gallbladder polyp [None]
